FAERS Safety Report 4352369-4 (Version None)
Quarter: 2004Q2

REPORT INFORMATION
  Report Type: 
  Country: None (occurrence: None)
  Receive Date: 20040423
  Receipt Date: 20040310
  Transmission Date: 20050107
  Serious: Yes (Hospitalization, Other)
  Sender: FDA-Public Use
  Company Number: CIP03003475

PATIENT
  Age: 67 Year
  Sex: Male

DRUGS (10)
  1. MACROBID [Suspect]
     Indication: CYSTITIS
     Dosage: 100 MG DAILY, ORAL
     Route: 048
     Dates: start: 19990420, end: 20010523
  2. LOTREL [Concomitant]
  3. MECLOZINE (MECLOZINE) [Concomitant]
  4. PRILOSEC [Concomitant]
  5. HYDROCHLOROTHIAZIDE [Concomitant]
  6. K-DUR 10 [Concomitant]
  7. ACETYLSALICYCLIC ACID ENTERIC COATED (ACETYLSALICYLIC ACID) [Concomitant]
  8. TRAZODONE HCL [Concomitant]
  9. SEREVENT [Concomitant]
  10. ALBUTEROL [Concomitant]

REACTIONS (1)
  - PULMONARY FIBROSIS [None]
